FAERS Safety Report 21108976 (Version 3)
Quarter: 2022Q3

REPORT INFORMATION
  Report Type: Spontaneous
  Country: US (occurrence: US)
  Receive Date: 20220721
  Receipt Date: 20220902
  Transmission Date: 20221027
  Serious: No
  Sender: FDA-Public Use
  Company Number: US-BRISTOL-MYERS SQUIBB COMPANY-2022-068563

PATIENT
  Age: 78 Year
  Sex: Female

DRUGS (3)
  1. INREBIC [Suspect]
     Active Substance: FEDRATINIB HYDROCHLORIDE
     Indication: Polycythaemia vera
     Dosage: TAKE 4 CAPSULES BY MOUTH ONCE DAILY
     Route: 048
     Dates: start: 20220311
  2. MAGNESIUM OXIDE [Concomitant]
     Active Substance: MAGNESIUM OXIDE
  3. MAPAP [Concomitant]
     Active Substance: ACETAMINOPHEN

REACTIONS (8)
  - Fatigue [Unknown]
  - Muscle spasms [Unknown]
  - Pain [Unknown]
  - Contusion [Unknown]
  - Dry skin [Unknown]
  - Arthralgia [Unknown]
  - Headache [Unknown]
  - Arthralgia [Unknown]

NARRATIVE: CASE EVENT DATE: 20220502
